FAERS Safety Report 7438960-7 (Version None)
Quarter: 2011Q2

REPORT INFORMATION
  Report Type: 
  Country: None (occurrence: None)
  Receive Date: 20110426
  Receipt Date: 20110412
  Transmission Date: 20111010
  Serious: Yes (Disabling)
  Sender: FDA-Public Use
  Company Number: GB-MYLANLABS-2011S1007616

PATIENT
  Age: 57 Year
  Sex: Female
  Weight: 75 kg

DRUGS (6)
  1. SIMVASTATIN [Suspect]
     Indication: TYPE IIA HYPERLIPIDAEMIA
     Route: 048
     Dates: start: 20030101, end: 20060101
  2. ATORVASTATIN [Suspect]
     Indication: TYPE IIA HYPERLIPIDAEMIA
     Route: 048
     Dates: start: 20071001, end: 20110301
  3. LISINOPRIL [Concomitant]
     Indication: HYPERTENSION
     Route: 048
  4. BENDROFLUMETHIAZIDE [Concomitant]
     Indication: HYPERTENSION
     Route: 048
  5. ASPIRIN [Concomitant]
     Indication: CARDIOVASCULAR EVENT PROPHYLAXIS
     Route: 048
  6. ESOMEPRAZOLE [Concomitant]
     Indication: REFLUX OESOPHAGITIS
     Route: 048

REACTIONS (2)
  - PAIN [None]
  - AMNESIA [None]
